FAERS Safety Report 14205620 (Version 2)
Quarter: 2017Q4

REPORT INFORMATION
  Report Type: Spontaneous
  Country: US (occurrence: US)
  Receive Date: 20171120
  Receipt Date: 20171220
  Transmission Date: 20180321
  Serious: Yes (Hospitalization, Other)
  Sender: FDA-Public Use
  Company Number: US-ELI_LILLY_AND_COMPANY-US201711003743

PATIENT
  Age: 20 Year
  Sex: Male
  Weight: 67.5 kg

DRUGS (2)
  1. BASAGLAR [Suspect]
     Active Substance: INSULIN GLARGINE
     Indication: PRODUCT USED FOR UNKNOWN INDICATION
     Dosage: 38 U, EACH MORNING
     Route: 058
  2. HUMALOG [Concomitant]
     Active Substance: INSULIN LISPRO
     Dosage: UNK, UNKNOWN
     Route: 065

REACTIONS (6)
  - Injection site erythema [Recovered/Resolved]
  - Drug dose omission [Unknown]
  - Blood glucose increased [Unknown]
  - Diabetic ketoacidosis [Recovered/Resolved]
  - Glycosylated haemoglobin increased [Unknown]
  - Injection site pain [Recovered/Resolved]

NARRATIVE: CASE EVENT DATE: 20171108
